FAERS Safety Report 7501815-3 (Version None)
Quarter: 2011Q2

REPORT INFORMATION
  Report Type: 
  Country: None (occurrence: None)
  Receive Date: 20110525
  Receipt Date: 20110104
  Transmission Date: 20111010
  Serious: Yes (Other)
  Sender: FDA-Public Use
  Company Number: US-BAYER-201031594NA

PATIENT
  Age: 22 Year
  Sex: Female
  Weight: 55.782 kg

DRUGS (25)
  1. BETHASONE [Concomitant]
     Dosage: UNK
     Dates: start: 20080506
  2. YASMIN [Suspect]
     Indication: MENSTRUATION IRREGULAR
  3. IMITREX [Concomitant]
  4. DEPO-MEDROL [Concomitant]
     Dosage: 40 MG, UNK
     Dates: start: 20050101
  5. MAGNESIUM CITRATE [Concomitant]
     Dosage: 300 ML, UNK
     Route: 048
     Dates: start: 20080602
  6. YAZ [Suspect]
     Indication: ORAL CONTRACEPTION
     Dosage: UNK
     Dates: start: 20080130, end: 20080917
  7. YAZ [Suspect]
     Indication: MENSTRUATION IRREGULAR
     Dosage: UNK
     Dates: start: 20080302, end: 20081001
  8. YASMIN [Suspect]
     Indication: ORAL CONTRACEPTION
     Dosage: UNK
     Dates: start: 20080302, end: 20081001
  9. YASMIN [Suspect]
     Indication: PREMENSTRUAL SYNDROME
  10. PRENATAL VITAMINS [Concomitant]
     Dosage: UNK
     Dates: start: 20080301
  11. YAZ [Suspect]
     Indication: PREMENSTRUAL SYNDROME
  12. CHANTIX [Concomitant]
     Indication: EX-TOBACCO USER
  13. DECADRON-LA [Concomitant]
     Dosage: 8 MG, UNK
     Dates: start: 20050101
  14. LEXAPRO [Concomitant]
     Indication: DEPRESSION
     Dosage: UNK
     Dates: start: 20110130
  15. ORTHO TRI-CYCLEN LO [Concomitant]
     Indication: ORAL CONTRACEPTION
     Dosage: UNK
     Dates: start: 20080917
  16. SINGULAIR [Concomitant]
  17. BIOTININ [Concomitant]
     Dosage: UNK
     Dates: start: 20080301
  18. OMEPRAZOLE [Concomitant]
     Dosage: 20 MG, UNK
     Route: 048
     Dates: start: 20080601
  19. ZITHROMAX [Concomitant]
     Dosage: UNK
     Dates: start: 20050101
  20. LEXAPRO [Concomitant]
     Indication: PREMENSTRUAL SYNDROME
     Dosage: UNK
     Dates: start: 20080130
  21. FLONASE [Concomitant]
  22. ORTHO TRI-CYCLEN [Concomitant]
  23. VERAMYST [Concomitant]
     Dosage: 2 SPRAYS IN NOSTRIL DAILY
     Dates: start: 20080101
  24. SINGULAIR [Concomitant]
     Dosage: 10 MG, UNK
     Dates: start: 20080506
  25. METAMUCIL-2 [Concomitant]
     Dosage: UNK
     Dates: start: 20080601

REACTIONS (5)
  - GALLBLADDER INJURY [None]
  - CHOLELITHIASIS [None]
  - METRORRHAGIA [None]
  - MIGRAINE [None]
  - CHOLECYSTITIS CHRONIC [None]
